FAERS Safety Report 22397021 (Version 1)
Quarter: 2023Q2

REPORT INFORMATION
  Report Type: Spontaneous
  Country: IN (occurrence: IN)
  Receive Date: 20230602
  Receipt Date: 20230602
  Transmission Date: 20230722
  Serious: Yes (Death, Life-Threatening, Hospitalization, Other)
  Sender: FDA-Public Use
  Company Number: IN-STERISCIENCE B.V.-2023-ST-001378

PATIENT
  Age: 11 Year
  Sex: Male

DRUGS (20)
  1. MIDAZOLAM [Suspect]
     Active Substance: MIDAZOLAM
     Indication: Naegleria infection
     Dosage: INFUSION, DOSE WAS INCREASED
     Route: 042
  2. MIDAZOLAM [Suspect]
     Active Substance: MIDAZOLAM
     Indication: Meningoencephalitis amoebic
  3. AMPHOTERICIN B [Suspect]
     Active Substance: AMPHOTERICIN B
     Indication: Naegleria infection
     Dosage: UNK
     Route: 065
  4. AMPHOTERICIN B [Suspect]
     Active Substance: AMPHOTERICIN B
     Indication: Meningoencephalitis amoebic
  5. FLUCONAZOLE [Suspect]
     Active Substance: FLUCONAZOLE
     Indication: Naegleria infection
     Dosage: UNK
     Route: 065
  6. FLUCONAZOLE [Suspect]
     Active Substance: FLUCONAZOLE
     Indication: Meningoencephalitis amoebic
  7. AZITHROMYCIN [Suspect]
     Active Substance: AZITHROMYCIN
     Indication: Naegleria infection
     Dosage: UNK
     Route: 065
  8. AZITHROMYCIN [Suspect]
     Active Substance: AZITHROMYCIN
     Indication: Meningoencephalitis amoebic
  9. RIFAMPIN [Suspect]
     Active Substance: RIFAMPIN
     Indication: Naegleria infection
     Dosage: UNK
     Route: 065
  10. RIFAMPIN [Suspect]
     Active Substance: RIFAMPIN
     Indication: Meningoencephalitis amoebic
  11. CEFTRIAXONE [Suspect]
     Active Substance: CEFTRIAXONE
     Indication: Naegleria infection
     Dosage: UNK
     Route: 065
  12. CEFTRIAXONE [Suspect]
     Active Substance: CEFTRIAXONE
     Indication: Meningoencephalitis amoebic
  13. ACYCLOVIR [Suspect]
     Active Substance: ACYCLOVIR
     Indication: Naegleria infection
     Dosage: UNK
     Route: 065
  14. ACYCLOVIR [Suspect]
     Active Substance: ACYCLOVIR
     Indication: Meningoencephalitis amoebic
  15. SODIUM CHLORIDE [Suspect]
     Active Substance: SODIUM CHLORIDE
     Indication: Naegleria infection
     Dosage: UNK
     Route: 065
  16. SODIUM CHLORIDE [Suspect]
     Active Substance: SODIUM CHLORIDE
     Indication: Meningoencephalitis amoebic
  17. DEXAMETHASONE [Suspect]
     Active Substance: DEXAMETHASONE
     Indication: Naegleria infection
     Dosage: UNK
     Route: 042
  18. DEXAMETHASONE [Suspect]
     Active Substance: DEXAMETHASONE
     Indication: Meningoencephalitis amoebic
  19. THIOPENTAL SODIUM [Suspect]
     Active Substance: THIOPENTAL SODIUM
     Indication: Naegleria infection
     Dosage: UNK
     Route: 065
  20. THIOPENTAL SODIUM [Suspect]
     Active Substance: THIOPENTAL SODIUM
     Indication: Meningoencephalitis amoebic

REACTIONS (1)
  - Drug ineffective for unapproved indication [Fatal]
